FAERS Safety Report 8521313-8 (Version None)
Quarter: 2012Q3

REPORT INFORMATION
  Report Type: 
  Country: None (occurrence: None)
  Receive Date: 20120719
  Receipt Date: 20120710
  Transmission Date: 20120928
  Serious: Yes (Hospitalization, Other)
  Sender: FDA-Public Use
  Company Number: US-ASTRAZENECA-2010SE35149

PATIENT
  Age: 47 Year
  Sex: Female

DRUGS (1)
  1. NEXIUM [Suspect]
     Route: 048

REACTIONS (5)
  - SYSTEMIC LUPUS ERYTHEMATOSUS [None]
  - DRUG DOSE OMISSION [None]
  - WEIGHT DECREASED [None]
  - DECREASED APPETITE [None]
  - VOMITING [None]
